FAERS Safety Report 4308572-2 (Version None)
Quarter: 2004Q1

REPORT INFORMATION
  Report Type: 
  Country: None (occurrence: None)
  Receive Date: 20040226
  Receipt Date: 20030513
  Transmission Date: 20041129
  Serious: Yes (Hospitalization)
  Sender: FDA-Public Use
  Company Number: 2003153947US

PATIENT
  Age: 52 Year
  Sex: Male

DRUGS (4)
  1. CELEBREX [Suspect]
     Dosage: ORAL
     Route: 048
  2. MOBIC [Suspect]
     Indication: ARTHROPATHY
     Dates: start: 20020915, end: 20020917
  3. ASPIRIN [Suspect]
  4. LIPITOR [Concomitant]

REACTIONS (1)
  - DUODENAL ULCER HAEMORRHAGE [None]
